FAERS Safety Report 14526534 (Version 2)
Quarter: 2018Q1

REPORT INFORMATION
  Report Type: Spontaneous
  Country: US (occurrence: US)
  Receive Date: 20180213
  Receipt Date: 20180316
  Transmission Date: 20180509
  Serious: Yes (Other)
  Sender: FDA-Public Use
  Company Number: US-NEPHRON STERILE COMPOUNDING CENTER-2041871

PATIENT

DRUGS (1)
  1. SUCCCINYLCHOLINE CHLORIDE-PF 20 MG/ML [Suspect]
     Active Substance: SUCCINYLCHOLINE CHLORIDE
     Route: 040

REACTIONS (1)
  - Drug ineffective [Recovered/Resolved]
